FAERS Safety Report 21816520 (Version 1)
Quarter: 2023Q1

REPORT INFORMATION
  Report Type: Spontaneous
  Country: IN (occurrence: IN)
  Receive Date: 20230104
  Receipt Date: 20230104
  Transmission Date: 20230418
  Serious: Yes (Other)
  Sender: FDA-Public Use
  Company Number: IN-MYLANLABS-2022M1142743

PATIENT
  Age: 15 Year
  Sex: Male

DRUGS (6)
  1. URSODIOL [Suspect]
     Active Substance: URSODIOL
     Indication: Hepatitis cholestatic
     Dosage: UNK
     Route: 065
  2. URSODIOL [Suspect]
     Active Substance: URSODIOL
     Indication: Hepatitis A
  3. CETIRIZINE [Suspect]
     Active Substance: CETIRIZINE HYDROCHLORIDE
     Indication: Hepatitis cholestatic
     Dosage: UNK
     Route: 065
  4. CETIRIZINE [Suspect]
     Active Substance: CETIRIZINE HYDROCHLORIDE
     Indication: Hepatitis A
  5. ORNITHINE ASPARTATE [Suspect]
     Active Substance: ORNITHINE ASPARTATE
     Indication: Hepatitis cholestatic
     Dosage: UNK, SACHETS
     Route: 065
  6. ORNITHINE ASPARTATE [Suspect]
     Active Substance: ORNITHINE ASPARTATE
     Indication: Hepatitis A

REACTIONS (1)
  - Drug ineffective [Unknown]
